FAERS Safety Report 9423737 (Version 2)
Quarter: 2013Q3

REPORT INFORMATION
  Report Type: Spontaneous
  Country: US (occurrence: US)
  Receive Date: 20130728
  Receipt Date: 20130814
  Transmission Date: 20140515
  Serious: Yes (Hospitalization, Other)
  Sender: FDA-Public Use
  Company Number: PHEH2013US014836

PATIENT
  Sex: Female

DRUGS (17)
  1. DIOVAN [Suspect]
     Dosage: 2 DF, (80 MG) PER DAY
  2. PANTOPRAZOLE [Concomitant]
     Dosage: UNK UKN, UNK
  3. AVAPRO [Concomitant]
     Dosage: UNK UKN, UNK
  4. NEURONTIN [Concomitant]
     Dosage: UNK UKN, UNK
  5. GABAPENTIN [Concomitant]
     Dosage: UNK UKN, UNK
  6. HYDROCODONE [Concomitant]
     Dosage: UNK UKN, UNK
  7. SINGULAIR [Concomitant]
     Dosage: UNK UKN, UNK
  8. ZETIA [Concomitant]
     Dosage: UNK UKN, UNK
  9. FLECTOR [Concomitant]
     Indication: PAIN
     Dosage: UNK UKN, UNK
  10. ROPINIROLE [Concomitant]
     Dosage: UNK UKN, UNK
  11. TESTOSTERONE [Concomitant]
     Dosage: UNK UKN, UNK
  12. ESTROGEN [Concomitant]
     Dosage: UNK UKN, UNK
  13. EYE DROPS [Concomitant]
     Dosage: UNK UKN, UNK
  14. XALATAN [Concomitant]
     Dosage: UNK UKN, UNK
  15. METROGEL [Concomitant]
     Indication: ROSACEA
     Dosage: UNK UKN, UNK
  16. LIDODERM [Concomitant]
     Indication: PAIN
     Dosage: UNK UKN, UNK
  17. CYMBALTA [Concomitant]
     Dosage: UNK UKN, UNK

REACTIONS (5)
  - Decreased appetite [Unknown]
  - Sinusitis [Unknown]
  - Blood pressure increased [Unknown]
  - Malaise [Unknown]
  - Drug ineffective [Unknown]
